FAERS Safety Report 7506842-8 (Version None)
Quarter: 2011Q2

REPORT INFORMATION
  Report Type: 
  Country: None (occurrence: None)
  Receive Date: 20110526
  Receipt Date: 20110517
  Transmission Date: 20111010
  Serious: Yes (Death)
  Sender: FDA-Public Use
  Company Number: B0716927A

PATIENT
  Sex: Male
  Weight: 75 kg

DRUGS (3)
  1. HYCAMTIN [Suspect]
     Route: 048
     Dates: start: 20110105, end: 20110119
  2. DEXAMETHASONE [Concomitant]
     Indication: PROPHYLAXIS
     Dates: start: 20110104
  3. TRAMADOL HCL [Concomitant]
     Indication: PAIN
     Dates: start: 20100714

REACTIONS (2)
  - ACUTE MYOCARDIAL INFARCTION [None]
  - FEBRILE NEUTROPENIA [None]
